FAERS Safety Report 8486895-3 (Version None)
Quarter: 2012Q3

REPORT INFORMATION
  Report Type: 
  Country: None (occurrence: None)
  Receive Date: 20120704
  Receipt Date: 20120625
  Transmission Date: 20120928
  Serious: Yes (Other)
  Sender: FDA-Public Use
  Company Number: US-ELI_LILLY_AND_COMPANY-US201206008882

PATIENT
  Age: 69 Year
  Sex: Male

DRUGS (5)
  1. AVAPRO [Concomitant]
  2. CIALIS [Suspect]
     Indication: ERECTILE DYSFUNCTION
     Dosage: 5 MG, QD
     Dates: end: 20120626
  3. UROXATRAL [Concomitant]
  4. ASPIRIN [Concomitant]
  5. ANDROGEL [Concomitant]

REACTIONS (2)
  - ATRIAL FIBRILLATION [None]
  - PAIN [None]
